FAERS Safety Report 6230472-1 (Version None)
Quarter: 2009Q2

REPORT INFORMATION
  Report Type: 
  Country: None (occurrence: None)
  Receive Date: 20090611
  Receipt Date: 20090603
  Transmission Date: 20091009
  Serious: Yes (Other)
  Sender: FDA-Public Use
  Company Number: TPA2009A00665

PATIENT
  Age: 55 Year
  Sex: Male

DRUGS (5)
  1. ACTOS [Suspect]
     Indication: TYPE 2 DIABETES MELLITUS
     Dosage: PER ORAL
     Route: 048
     Dates: start: 20080401
  2. XALATAN [Concomitant]
  3. GLYBURIDE [Concomitant]
  4. LANTUS [Concomitant]
  5. TAGAMET [Concomitant]

REACTIONS (7)
  - BENIGN PANCREATIC NEOPLASM [None]
  - HELICOBACTER PYLORI IDENTIFICATION TEST POSITIVE [None]
  - HEPATIC LESION [None]
  - HEPATIC STEATOSIS [None]
  - METASTASES TO LIVER [None]
  - PANCREATIC CARCINOMA [None]
  - PANCREATITIS ACUTE [None]
